FAERS Safety Report 9617682 (Version 2)
Quarter: 2013Q4

REPORT INFORMATION
  Report Type: Spontaneous
  Country: FR (occurrence: FR)
  Receive Date: 20131011
  Receipt Date: 20131016
  Transmission Date: 20140711
  Serious: Yes (Hospitalization)
  Sender: FDA-Public Use
  Company Number: FR-TEVA-436455ISR

PATIENT
  Age: 45 Year
  Sex: Female

DRUGS (2)
  1. COPAXONE [Suspect]
     Indication: MULTIPLE SCLEROSIS
     Dates: end: 2006
  2. COPAXONE [Suspect]
     Dates: start: 20130221, end: 20130919

REACTIONS (2)
  - Multiple sclerosis relapse [Recovering/Resolving]
  - Fall [Recovered/Resolved]
